FAERS Safety Report 13354692 (Version 1)
Quarter: 2017Q1

REPORT INFORMATION
  Report Type: Spontaneous
  Country: US (occurrence: US)
  Receive Date: 20170320
  Receipt Date: 20170320
  Transmission Date: 20170429
  Serious: No
  Sender: FDA-Public Use
  Company Number: None

PATIENT
  Age: 40 Year
  Sex: Female

DRUGS (1)
  1. CAPECITABINE TAB 500MG [Suspect]
     Active Substance: CAPECITABINE

REACTIONS (5)
  - Diarrhoea [None]
  - Dizziness [None]
  - Skin discolouration [None]
  - Decreased appetite [None]
  - Haematochezia [None]

NARRATIVE: CASE EVENT DATE: 20170320
